FAERS Safety Report 15234425 (Version 1)
Quarter: 2018Q3

REPORT INFORMATION
  Report Type: Report from Study
  Country: None (occurrence: CA)
  Receive Date: 20180803
  Receipt Date: 20180803
  Transmission Date: 20181010
  Serious: Yes (Hospitalization, Other)
  Sender: FDA-Public Use
  Company Number: CA-ABBVIE-18K-028-2440448-00

PATIENT
  Age: 64 Year
  Sex: Male

DRUGS (1)
  1. HUMIRA [Suspect]
     Active Substance: ADALIMUMAB
     Indication: CROHN^S DISEASE
     Route: 058
     Dates: start: 20140110

REACTIONS (5)
  - Prostatomegaly [Unknown]
  - Knee arthroplasty [Unknown]
  - Stomal hernia [Not Recovered/Not Resolved]
  - Urinary retention [Unknown]
  - Rectal abscess [Unknown]

NARRATIVE: CASE EVENT DATE: 201709
